FAERS Safety Report 6924993-3 (Version None)
Quarter: 2010Q3

REPORT INFORMATION
  Report Type: 
  Country: None (occurrence: None)
  Receive Date: 20100816
  Receipt Date: 20100810
  Transmission Date: 20110219
  Serious: Yes (Hospitalization)
  Sender: FDA-Public Use
  Company Number: US-KINGPHARMUSA00001-K201001015

PATIENT
  Sex: Male

DRUGS (1)
  1. EMBEDA [Suspect]
     Indication: BACK PAIN
     Dosage: 640 MG, SINGLE
     Dates: start: 20100805, end: 20100805

REACTIONS (5)
  - COMA [None]
  - CYANOSIS [None]
  - DRUG ABUSE [None]
  - INTENTIONAL OVERDOSE [None]
  - RESPIRATORY DEPRESSION [None]
